FAERS Safety Report 4756104-7 (Version None)
Quarter: 2005Q3

REPORT INFORMATION
  Report Type: 
  Country: None (occurrence: None)
  Receive Date: 20050829
  Receipt Date: 20040818
  Transmission Date: 20060218
  Serious: Yes (Other)
  Sender: FDA-Public Use
  Company Number: CHPA2004US04065

PATIENT
  Age: 82 Year
  Sex: Female
  Weight: 52.2 kg

DRUGS (1)
  1. BENEFIBER FIBER SUPLEMENT SUGAR FREE (NCH)(GUAR GUM) POWDER [Suspect]
     Dosage: 3 TSP, QD, ORAL
     Route: 048
     Dates: end: 20040817

REACTIONS (2)
  - HERNIA REPAIR [None]
  - RECTAL HAEMORRHAGE [None]
